FAERS Safety Report 9336397 (Version 3)
Quarter: 2014Q2

REPORT INFORMATION
  Report Type: Spontaneous
  Country: AU (occurrence: AU)
  Receive Date: 20130607
  Receipt Date: 20140605
  Transmission Date: 20141212
  Serious: Yes (Hospitalization, Other)
  Sender: FDA-Public Use
  Company Number: AU-009507513-1306AUS001629

PATIENT
  Age: 64 Year
  Sex: Male
  Weight: 147 kg

DRUGS (19)
  1. MK-0000 [Suspect]
     Dosage: DOSE UNSPECIFIED
     Route: 048
  2. CANDESARTAN CILEXETIL [Suspect]
     Dosage: DOSE UNSPECIFIED
     Route: 048
  3. FUROSEMIDE [Suspect]
     Dosage: DOSE UNSPECIFIED
     Route: 048
  4. GLICLAZIDE [Suspect]
     Dosage: DOSE UNSPECIFIED
  5. INSPRA [Suspect]
     Indication: CARDIAC FAILURE
     Dosage: 50 MG, QD
     Dates: start: 20110927, end: 20130101
  6. METFORMIN HYDROCHLORIDE [Suspect]
     Dosage: DOSE UNSPECIFIED
  7. PERHEXILINE MALEATE [Suspect]
     Dosage: DOSE UNSPECIFIED
  8. CARVEDILOL [Concomitant]
  9. COPLAVIX [Concomitant]
     Dosage: DOSE UNSPECIFIED
  10. DIGOXIN [Concomitant]
     Dosage: DOSE UNSPECIFIED
  11. HYDRALAZINE HYDROCHLORIDE [Concomitant]
     Dosage: 50 MG, QD
  12. INSULIN [Concomitant]
     Dosage: DOSE UNSPECIFIED
  13. IVABRADINE [Concomitant]
     Dosage: DOSE UNSPECIFIED
  14. NICORANDIL [Concomitant]
     Dosage: 2 DOSE UNSPECIFIED, DAILY
  15. NOVORAPID [Concomitant]
     Dosage: UNK
  16. PRAZOSIN HYDROCHLORIDE [Concomitant]
     Dosage: DOSE UNSPECIFIED
  17. QUINAPRIL HYDROCHLORIDE [Concomitant]
     Dosage: 20 MG, QD
  18. CRESTOR [Concomitant]
     Dosage: DOSE UNSPECIFIED
  19. SOTALOL HYDROCHLORIDE [Concomitant]
     Dosage: DOSE UNSPECIFIED

REACTIONS (4)
  - Renal failure acute [Recovered/Resolved]
  - Blood creatinine increased [Recovered/Resolved]
  - Hypotension [Recovered/Resolved]
  - Presyncope [Recovered/Resolved]
